FAERS Safety Report 4305367-0 (Version None)
Quarter: 2004Q1

REPORT INFORMATION
  Report Type: 
  Country: None (occurrence: None)
  Receive Date: 20040226
  Receipt Date: 20030822
  Transmission Date: 20041129
  Serious: Yes (Hospitalization)
  Sender: FDA-Public Use
  Company Number: US-BRISTOL-MYERS SQUIBB COMPANY-12363644

PATIENT
  Age: 52 Year
  Sex: Female
  Weight: 80 kg

DRUGS (7)
  1. PACLITAXEL [Suspect]
     Indication: BREAST CANCER
     Dosage: 200 MG/M2; CYCLE 2: 14-JUL-2003; CYCLE 3: 04-AUG-2003
     Route: 042
     Dates: start: 20030623, end: 20030623
  2. CARBOPLATIN [Suspect]
     Indication: BREAST CANCER
     Dosage: AUC=5; CYCLE 2: 14-JUL-2003; CYCLE 3: 04-AUG-2003
     Route: 042
     Dates: start: 20030623, end: 20030623
  3. NEULASTA [Concomitant]
     Route: 058
     Dates: start: 20030804, end: 20030804
  4. ZOFRAN [Concomitant]
     Indication: PREMEDICATION
     Route: 042
     Dates: start: 20030804, end: 20030804
  5. DEXAMETHASONE [Concomitant]
     Indication: PREMEDICATION
     Route: 042
     Dates: start: 20030804, end: 20030804
  6. DIPHENHYDRAMINE HCL [Concomitant]
     Indication: PREMEDICATION
     Route: 042
     Dates: start: 20030804, end: 20030804
  7. RANITIDINE [Concomitant]
     Indication: PREMEDICATION
     Route: 042
     Dates: start: 20030804, end: 20030804

REACTIONS (4)
  - FEBRILE NEUTROPENIA [None]
  - LIVER FUNCTION TEST ABNORMAL [None]
  - NEUTROPHIL COUNT DECREASED [None]
  - PYREXIA [None]
